FAERS Safety Report 6991772-0 (Version None)
Quarter: 2010Q3

REPORT INFORMATION
  Report Type: 
  Country: None (occurrence: None)
  Receive Date: 20100917
  Receipt Date: 20100909
  Transmission Date: 20110219
  Serious: Yes (Other)
  Sender: FDA-Public Use
  Company Number: US-PFIZER INC-2010114998

PATIENT
  Sex: Female
  Weight: 57.6 kg

DRUGS (5)
  1. GEODON [Suspect]
     Indication: DEPRESSION
     Dosage: 20 MG, 1X/DAY AT NIGHT
     Dates: start: 20100318, end: 20100321
  2. GEODON [Suspect]
     Dosage: 20 MG, 1X/DAY
     Dates: start: 20100714
  3. GEODON [Suspect]
     Dosage: 40 MG, 1X/DAY
     Dates: start: 20100824
  4. AMANTADINE [Suspect]
     Indication: TREMOR
     Dosage: 100 MG, 1X/DAY
     Dates: start: 20100318
  5. WELLBUTRIN [Concomitant]
     Dosage: UNK

REACTIONS (2)
  - ABDOMINAL DISTENSION [None]
  - TREMOR [None]
